FAERS Safety Report 11198358 (Version 1)
Quarter: 2015Q2

REPORT INFORMATION
  Report Type: Spontaneous
  Country: US (occurrence: None)
  Receive Date: 20150615
  Receipt Date: 20150615
  Transmission Date: 20150821
  Serious: No
  Sender: FDA-Public Use
  Company Number: None

PATIENT
  Sex: Male
  Weight: 68.04 kg

DRUGS (8)
  1. LIPITOR [Concomitant]
     Active Substance: ATORVASTATIN CALCIUM
  2. PREDNSIONE [Concomitant]
  3. ONE-A-DAY NOS [Concomitant]
     Active Substance: MINERALS\VITAMINS
  4. MESALAMINE ENEMA [Concomitant]
  5. REMICADE [Suspect]
     Active Substance: INFLIXIMAB
     Indication: COLITIS ULCERATIVE
     Dosage: 5MG/KG, EVERY 8 WEEKS
     Route: 042
     Dates: start: 20150227, end: 20150501
  6. LIALDA [Concomitant]
     Active Substance: MESALAMINE
  7. PREVACID [Concomitant]
     Active Substance: LANSOPRAZOLE
  8. 6-MERCAPTOPURINE [Concomitant]
     Active Substance: MERCAPTOPURINE

REACTIONS (2)
  - Arthralgia [None]
  - Tendonitis [None]

NARRATIVE: CASE EVENT DATE: 20150605
